FAERS Safety Report 22332153 (Version 1)
Quarter: 2023Q2

REPORT INFORMATION
  Report Type: Spontaneous
  Country: NZ (occurrence: NZ)
  Receive Date: 20230517
  Receipt Date: 20230517
  Transmission Date: 20230721
  Serious: Yes (Death, Other)
  Sender: FDA-Public Use
  Company Number: NZ-BRISTOL-MYERS SQUIBB COMPANY-2023-068975

PATIENT
  Age: 77 Year
  Sex: Female
  Weight: 74 kg

DRUGS (32)
  1. AZACITIDINE [Suspect]
     Active Substance: AZACITIDINE
     Indication: Acute myeloid leukaemia
     Dosage: 135 MILLIGRAM
     Route: 042
     Dates: start: 20211108
  2. AZACITIDINE [Suspect]
     Active Substance: AZACITIDINE
     Dosage: 135 MILLIGRAM
     Route: 042
     Dates: start: 20211115
  3. BGB-11417 [Suspect]
     Active Substance: BGB-11417
     Indication: Acute myeloid leukaemia
     Dosage: 20 MILLIGRAM
     Route: 048
     Dates: start: 20211109
  4. BGB-11417 [Suspect]
     Active Substance: BGB-11417
     Dosage: 160 MILLIGRAM
     Route: 048
     Dates: start: 20211112
  5. DOCUSATE SODIUM AND SENNA [Concomitant]
     Active Substance: DOCUSATE SODIUM\SENNOSIDES
     Indication: Constipation
     Dosage: FREQUENCY TEXT: NOT PROVIDED
     Dates: start: 20211109
  6. FOSAMAX [Concomitant]
     Active Substance: ALENDRONATE SODIUM
     Indication: Osteoporosis prophylaxis
     Dosage: FREQUENCY TEXT: NOT PROVIDED
     Dates: start: 20130927, end: 20230222
  7. ACETAMINOPHEN [Concomitant]
     Active Substance: ACETAMINOPHEN
     Indication: Back pain
     Dosage: FREQUENCY TEXT: NOT PROVIDED
     Dates: start: 20211109, end: 202205
  8. ACETAMINOPHEN [Concomitant]
     Active Substance: ACETAMINOPHEN
     Indication: Infection
  9. ACETAMINOPHEN [Concomitant]
     Active Substance: ACETAMINOPHEN
     Indication: Febrile neutropenia
  10. ACETAMINOPHEN [Concomitant]
     Active Substance: ACETAMINOPHEN
     Indication: Joint injury
  11. ACETAMINOPHEN [Concomitant]
     Active Substance: ACETAMINOPHEN
     Indication: Back injury
  12. FUROSEMIDE [Concomitant]
     Active Substance: FUROSEMIDE
     Indication: Pulmonary oedema
     Dosage: FREQUENCY TEXT: NOT PROVIDED
     Dates: start: 20211110, end: 20211112
  13. SODIUM CHLORIDE [Concomitant]
     Active Substance: SODIUM CHLORIDE
     Indication: Tumour lysis syndrome
     Dosage: FREQUENCY TEXT: NOT PROVIDED
     Dates: start: 20211109, end: 20211110
  14. MICROLAX [MACROGOL;SODIUM CITRATE;SODIUM LAURYL SULFATE;SORBIC ACID] [Concomitant]
     Indication: Constipation
     Dosage: FREQUENCY TEXT: NOT PROVIDED
     Dates: start: 20211112, end: 20211112
  15. ENOXAPARIN [Concomitant]
     Active Substance: ENOXAPARIN
     Indication: Deep vein thrombosis
     Dosage: FREQUENCY TEXT: NOT PROVIDED
     Dates: start: 20211112, end: 20211112
  16. POTASSIUM PHOSPHATE, MONOBASIC [Concomitant]
     Active Substance: POTASSIUM PHOSPHATE, MONOBASIC
     Indication: Hypokalaemia
     Dosage: FREQUENCY TEXT: NOT PROVIDED
     Dates: start: 20211111, end: 20211112
  17. CEFACLOR [Concomitant]
     Active Substance: CEFACLOR
     Indication: Infection prophylaxis
     Dosage: FREQUENCY TEXT: NOT PROVIDED
     Dates: start: 20211114, end: 20211118
  18. CEFACLOR [Concomitant]
     Active Substance: CEFACLOR
     Dosage: FREQUENCY TEXT: NOT PROVIDED
     Dates: start: 20211116, end: 20211116
  19. AUGMENTIN [Concomitant]
     Active Substance: AMOXICILLIN\CLAVULANATE POTASSIUM
     Indication: Infection prophylaxis
     Dosage: FREQUENCY TEXT: NOT PROVIDED
     Dates: start: 20211116, end: 20211116
  20. POTASSIUM CHLORIDE [Concomitant]
     Active Substance: POTASSIUM CHLORIDE
     Indication: Prophylaxis
     Dosage: FREQUENCY TEXT: NOT PROVIDED
     Dates: start: 20211112, end: 20211116
  21. ASPIRIN [Concomitant]
     Active Substance: ASPIRIN
     Indication: Cardiovascular event prophylaxis
     Dosage: FREQUENCY TEXT: NOT PROVIDED
     Dates: start: 20100927, end: 20211214
  22. ALLOPURINOL [Concomitant]
     Active Substance: ALLOPURINOL
     Indication: Prophylaxis
     Dosage: FREQUENCY TEXT: NOT PROVIDED
     Dates: start: 20211018, end: 20211125
  23. OLANZAPINE [Concomitant]
     Active Substance: OLANZAPINE
     Indication: Bipolar disorder
     Dosage: FREQUENCY TEXT: NOT PROVIDED
  24. INCRUSE ELLIPTA [Concomitant]
     Active Substance: UMECLIDINIUM BROMIDE
     Indication: Chronic obstructive pulmonary disease
     Dosage: FREQUENCY TEXT: NOT PROVIDED
  25. BREO ELLIPTA [Concomitant]
     Active Substance: FLUTICASONE FUROATE\VILANTEROL TRIFENATATE
     Indication: Chronic obstructive pulmonary disease
     Dosage: FREQUENCY TEXT: NOT PROVIDED
     Dates: start: 20100910, end: 20230222
  26. ALBUTEROL [Concomitant]
     Active Substance: ALBUTEROL
     Indication: Chronic obstructive pulmonary disease
     Dosage: FREQUENCY TEXT: NOT PROVIDED
     Dates: start: 20211110, end: 20230222
  27. IPRATROPIUM [Concomitant]
     Active Substance: IPRATROPIUM
     Indication: Chronic obstructive pulmonary disease
     Dosage: FREQUENCY TEXT: NOT PROVIDED
     Dates: start: 20211110, end: 20230222
  28. VALPORATE CHRONO [Concomitant]
     Indication: Bipolar disorder
     Dosage: FREQUENCY TEXT: NOT PROVIDED
  29. ENTECAVIR [Concomitant]
     Active Substance: ENTECAVIR
     Indication: Antiviral prophylaxis
     Dosage: FREQUENCY TEXT: NOT PROVIDED
     Dates: start: 20211112, end: 20230222
  30. PIPERACILLIN SODIUM\TAZOBACTAM SODIUM [Concomitant]
     Active Substance: PIPERACILLIN SODIUM\TAZOBACTAM SODIUM
     Indication: Infection prophylaxis
     Dosage: FREQUENCY TEXT: NOT PROVIDED
     Dates: start: 20211110, end: 20211114
  31. UMECLIDINIUM [Concomitant]
     Active Substance: UMECLIDINIUM
     Indication: Chronic obstructive pulmonary disease
     Dosage: FREQUENCY TEXT: NOT PROVIDED
     Dates: start: 20190423, end: 20230222
  32. UMECLIDINIUM [Concomitant]
     Active Substance: UMECLIDINIUM
     Dosage: FREQUENCY TEXT: NOT PROVIDED
     Dates: start: 20211116, end: 20211116

REACTIONS (1)
  - Death [Fatal]

NARRATIVE: CASE EVENT DATE: 20230222
